FAERS Safety Report 17398076 (Version 1)
Quarter: 2020Q1

REPORT INFORMATION
  Report Type: Spontaneous
  Country: BG (occurrence: BG)
  Receive Date: 20200210
  Receipt Date: 20200210
  Transmission Date: 20200409
  Serious: Yes (Other)
  Sender: FDA-Public Use
  Company Number: BG-GILEAD-2020-0449934

PATIENT
  Age: 63 Year
  Sex: Female

DRUGS (3)
  1. MOXOGAMMA [Concomitant]
     Active Substance: MOXONIDINE
  2. CORDACARE [Concomitant]
  3. EPCLUSA [Suspect]
     Active Substance: SOFOSBUVIR\VELPATASVIR
     Indication: CHRONIC HEPATITIS C
     Dosage: 1 DOSAGE FORM
     Route: 065
     Dates: start: 20200124, end: 20200204

REACTIONS (4)
  - Headache [Unknown]
  - Malaise [Unknown]
  - Vertigo [Unknown]
  - Blood pressure increased [Unknown]

NARRATIVE: CASE EVENT DATE: 20200204
